FAERS Safety Report 9704084 (Version 1)
Quarter: 2013Q4

REPORT INFORMATION
  Report Type: Spontaneous
  Country: IT (occurrence: IT)
  Receive Date: 20131122
  Receipt Date: 20131122
  Transmission Date: 20140711
  Serious: Yes (Other)
  Sender: FDA-Public Use
  Company Number: IT-PFIZER INC-2013333882

PATIENT
  Age: 28 Year
  Sex: Female

DRUGS (3)
  1. XANAX [Suspect]
     Dosage: 13 DF, TOTAL
     Route: 048
  2. RISPERDAL [Suspect]
     Dosage: 9 DF, TOTAL
     Route: 048
  3. DALMADORM [Suspect]
     Dosage: 2 DF, TOTAL
     Route: 048

REACTIONS (2)
  - Drug abuse [Unknown]
  - Self injurious behaviour [Unknown]
